FAERS Safety Report 15644374 (Version 2)
Quarter: 2018Q4

REPORT INFORMATION
  Report Type: Spontaneous
  Country: US (occurrence: US)
  Receive Date: 20181121
  Receipt Date: 20181218
  Transmission Date: 20190205
  Serious: Yes (Hospitalization)
  Sender: FDA-Public Use
  Company Number: US-OTSUKA-2018_024810

PATIENT
  Sex: Female

DRUGS (2)
  1. ABILIFY [Suspect]
     Active Substance: ARIPIPRAZOLE
     Indication: PSYCHOTIC DISORDER
     Dosage: UNK
     Route: 065
     Dates: start: 20100201, end: 20100426
  2. ABILIFY [Suspect]
     Active Substance: ARIPIPRAZOLE
     Dosage: 10 MG, QD (BEDTIME)
     Route: 065
     Dates: start: 2010, end: 20101028

REACTIONS (15)
  - Tearfulness [Unknown]
  - Nausea [Unknown]
  - Delusion [Unknown]
  - Suicidal ideation [Unknown]
  - Physical assault [Unknown]
  - Agitation [Unknown]
  - Tangentiality [Unknown]
  - Condition aggravated [Recovered/Resolved]
  - Feeling of despair [Unknown]
  - Product use in unapproved indication [Unknown]
  - Paranoia [Unknown]
  - Obsessive-compulsive disorder [Unknown]
  - Speech disorder [Unknown]
  - Depressed mood [Unknown]
  - Gambling disorder [Recovered/Resolved]
